FAERS Safety Report 7027666-4 (Version None)
Quarter: 2010Q4

REPORT INFORMATION
  Report Type: 
  Country: None (occurrence: None)
  Receive Date: 20101004
  Receipt Date: 20100928
  Transmission Date: 20110411
  Serious: Yes (Hospitalization, Other)
  Sender: FDA-Public Use
  Company Number: US-AMGEN-KDL429752

PATIENT
  Sex: Female

DRUGS (1)
  1. ENBREL [Suspect]
     Indication: PSORIASIS
     Route: 058
     Dates: start: 20090317, end: 20100301

REACTIONS (7)
  - BASEDOW'S DISEASE [None]
  - CHEST PAIN [None]
  - GASTRITIS [None]
  - HOSPITALISATION [None]
  - INFLAMMATION [None]
  - ULCER [None]
  - WHITE BLOOD CELL COUNT ABNORMAL [None]
